FAERS Safety Report 4384135-8 (Version None)
Quarter: 2004Q2

REPORT INFORMATION
  Report Type: 
  Country: None (occurrence: None)
  Receive Date: 20040621
  Receipt Date: 20040610
  Transmission Date: 20050107
  Serious: Yes (Death, Hospitalization)
  Sender: FDA-Public Use
  Company Number: HQ3003227JUN2002

PATIENT
  Age: 74 Year
  Sex: Male
  Weight: 78.5 kg

DRUGS (5)
  1. MYLOTARG [Suspect]
     Indication: ACUTE MYELOID LEUKAEMIA
     Dosage: 9 MG/M^2 1X PER 1 DAY, INTRAVENOUS
     Route: 042
     Dates: start: 20020617, end: 20020617
  2. ACYCLOVIR [Concomitant]
  3. FLUCONAZOLE [Concomitant]
  4. PEPCID [Concomitant]
  5. FLOMAX [Concomitant]

REACTIONS (18)
  - ALPHA HAEMOLYTIC STREPTOCOCCAL INFECTION [None]
  - BLOOD CULTURE POSITIVE [None]
  - CONFUSIONAL STATE [None]
  - DISEASE PROGRESSION [None]
  - DIZZINESS [None]
  - EPISTAXIS [None]
  - FEBRILE NEUTROPENIA [None]
  - HAEMATOCHEZIA [None]
  - HAEMATURIA [None]
  - HEPATOMEGALY [None]
  - IRRITABILITY [None]
  - LUNG NEOPLASM [None]
  - MENTAL STATUS CHANGES [None]
  - OEDEMA PERIPHERAL [None]
  - PITTING OEDEMA [None]
  - RESTLESSNESS [None]
  - STAPHYLOCOCCAL INFECTION [None]
  - WEIGHT INCREASED [None]
